FAERS Safety Report 4953782-4 (Version None)
Quarter: 2006Q1

REPORT INFORMATION
  Report Type: 
  Country: None (occurrence: None)
  Receive Date: 20060321
  Receipt Date: 20060314
  Transmission Date: 20060701
  Serious: Yes (Hospitalization)
  Sender: FDA-Public Use
  Company Number: S06-USA-00351-01

PATIENT
  Age: 42 Year
  Sex: Female

DRUGS (3)
  1. LEXAPRO [Suspect]
     Indication: SCHIZOAFFECTIVE DISORDER
     Dates: start: 20051001, end: 20051226
  2. PROVIGIL [Suspect]
     Indication: SOMNOLENCE
     Dosage: 100 MG QD PO
     Route: 048
     Dates: start: 20051208, end: 20051222
  3. RISPERDAL [Suspect]
     Indication: SCHIZOAFFECTIVE DISORDER
     Dates: start: 20051001, end: 20051226

REACTIONS (5)
  - ORAL INTAKE REDUCED [None]
  - PIGMENTATION DISORDER [None]
  - SOMNOLENCE [None]
  - STEVENS-JOHNSON SYNDROME [None]
  - TOXIC EPIDERMAL NECROLYSIS [None]
